FAERS Safety Report 6347377-8 (Version None)
Quarter: 2009Q3

REPORT INFORMATION
  Report Type: 
  Country: None (occurrence: None)
  Receive Date: 20090910
  Receipt Date: 20090908
  Transmission Date: 20100115
  Serious: Yes (Hospitalization)
  Sender: FDA-Public Use
  Company Number: JP-BRACCO-002456

PATIENT
  Age: 66 Year
  Sex: Male

DRUGS (15)
  1. HARNAL [Concomitant]
     Indication: BENIGN PROSTATIC HYPERPLASIA
     Route: 048
  2. PROMAC [Concomitant]
     Indication: GASTRIC ULCER
     Route: 048
  3. AMLODIPINE [Concomitant]
     Indication: MYOCARDIAL INFARCTION
     Route: 048
  4. GASTER D [Concomitant]
     Indication: GASTRIC ULCER
     Route: 048
  5. ASPIRIN [Concomitant]
     Indication: MYOCARDIAL INFARCTION
     Route: 048
  6. PLAVIX [Concomitant]
     Indication: ANGINA PECTORIS
     Route: 048
  7. NEORAL [Concomitant]
     Indication: PUSTULAR PSORIASIS
     Route: 048
  8. ZYLORIC [Concomitant]
     Indication: GOUT
     Route: 048
  9. LOCHOL [Concomitant]
     Indication: HYPERCHOLESTEROLAEMIA
     Route: 048
  10. GLUFAST [Concomitant]
     Indication: TYPE 2 DIABETES MELLITUS
     Route: 048
  11. IOPAMIDOL [Suspect]
     Indication: CATHETERISATION CARDIAC
     Route: 013
     Dates: start: 20070612, end: 20070612
  12. IOPAMIDOL [Suspect]
     Indication: MYOCARDIAL INFARCTION
     Route: 013
     Dates: start: 20070418, end: 20070418
  13. IOPAMIDOL [Suspect]
     Indication: ARTERIOGRAM CORONARY
     Route: 013
     Dates: start: 20080625, end: 20080625
  14. CORTICOSTEROID NOS [Concomitant]
     Indication: PUSTULAR PSORIASIS
     Route: 065
  15. TIGASON [Concomitant]
     Indication: PUSTULAR PSORIASIS
     Route: 048

REACTIONS (1)
  - PUSTULAR PSORIASIS [None]
